FAERS Safety Report 5369362-5 (Version None)
Quarter: 2007Q2

REPORT INFORMATION
  Report Type: 
  Country: None (occurrence: None)
  Receive Date: 20070620
  Receipt Date: 20070608
  Transmission Date: 20071010
  Serious: Yes (Death)
  Sender: FDA-Public Use
  Company Number: 2007P1000276

PATIENT
  Age: 2 Year
  Sex: Female

DRUGS (4)
  1. BUSULFAN (BUSULFAN) [Suspect]
     Indication: STEM CELL TRANSPLANT
     Dosage: 1.2 MG/KG; QID; IV
     Route: 042
     Dates: start: 20070103, end: 20070106
  2. FILGRASTIM [Concomitant]
  3. CYCLOSPORINE [Concomitant]
  4. CYCLOPHOSPHAMIDE [Concomitant]

REACTIONS (8)
  - ANOREXIA [None]
  - FEBRILE NEUTROPENIA [None]
  - GENERAL PHYSICAL HEALTH DETERIORATION [None]
  - HERPES ZOSTER [None]
  - INTERSTITIAL LUNG DISEASE [None]
  - MALAISE [None]
  - NAUSEA [None]
  - VOMITING [None]
